FAERS Safety Report 10319810 (Version 2)
Quarter: 2015Q1

REPORT INFORMATION
  Report Type: Other
  Country: None (occurrence: US)
  Receive Date: 20140719
  Receipt Date: 20150216
  Transmission Date: 20150720
  Serious: Yes (Death, Other)
  Sender: FDA-Public Use
  Company Number: US-GSKPPD-2014GSK018003

PATIENT
  Age: 76 Year
  Sex: Female

DRUGS (8)
  1. COUMADIN [Concomitant]
     Active Substance: WARFARIN SODIUM
  2. CARDIZEM CD [Concomitant]
     Active Substance: DILTIAZEM HYDROCHLORIDE
  3. ALDACTONE [Concomitant]
     Active Substance: SPIRONOLACTONE
  4. DIGOXIN. [Concomitant]
     Active Substance: DIGOXIN
  5. AVANDAMET [Suspect]
     Active Substance: METFORMIN HYDROCHLORIDE\ROSIGLITAZONE MALEATE
     Indication: DIABETES MELLITUS
     Dosage: 1 MG PER 500MG?DATES OF AVANDAMET USE COULD NOT BE CONFIRMED IN RECORDS REVIEWED
  6. AVANDIA [Suspect]
     Active Substance: ROSIGLITAZONE MALEATE
     Indication: DIABETES MELLITUS
     Dosage: AVANDIA WAS NOT LISTED AMONG THE PATIENTS RECORDS REVIEWED
     Route: 048
  7. PRINIVIL [Concomitant]
     Active Substance: LISINOPRIL
  8. TOPROL XL [Concomitant]
     Active Substance: METOPROLOL SUCCINATE

REACTIONS (3)
  - Cardiac failure congestive [Unknown]
  - Atrial fibrillation [Recovered/Resolved]
  - Myocardial infarction [Fatal]

NARRATIVE: CASE EVENT DATE: 20030509
